FAERS Safety Report 8999508 (Version 3)
Quarter: 2013Q3

REPORT INFORMATION
  Report Type: Report from Study
  Country: DE (occurrence: DE)
  Receive Date: 20130103
  Receipt Date: 20130823
  Transmission Date: 20140515
  Serious: Yes (Hospitalization)
  Sender: FDA-Public Use
  Company Number: DE-ROCHE-1176280

PATIENT
  Age: 49 Year
  Sex: Male

DRUGS (13)
  1. TOCILIZUMAB [Suspect]
     Indication: RHEUMATOID ARTHRITIS
     Route: 042
     Dates: start: 20121031
  2. TOCILIZUMAB [Suspect]
     Route: 042
     Dates: start: 20121213
  3. TOCILIZUMAB [Suspect]
     Route: 042
     Dates: start: 20130107
  4. MTX [Concomitant]
     Route: 065
  5. SALICYLAZOSULFAPYRIDINE [Concomitant]
     Route: 065
  6. DECORTIN [Concomitant]
     Route: 065
  7. FOLSAN [Concomitant]
     Route: 065
  8. PANTOZOL [Concomitant]
     Route: 065
  9. JODETTEN [Concomitant]
     Route: 065
  10. QUENSYL [Concomitant]
     Route: 065
  11. CALCIUM D3 [Concomitant]
  12. RAMIPRIL [Concomitant]
     Route: 065
  13. NOVALGIN [Concomitant]
     Dosage: 20 GTT
     Route: 065

REACTIONS (2)
  - Thrombosis [Unknown]
  - Thrombosis [Recovered/Resolved]
